FAERS Safety Report 8610562-6 (Version None)
Quarter: 2012Q3

REPORT INFORMATION
  Report Type: 
  Country: None (occurrence: None)
  Receive Date: 20120822
  Receipt Date: 20120726
  Transmission Date: 20120928
  Serious: No
  Sender: FDA-Public Use
  Company Number: US-BAYER-2012-083663

PATIENT
  Sex: Male

DRUGS (1)
  1. AVELOX [Suspect]
     Route: 042

REACTIONS (1)
  - INSOMNIA [None]
